FAERS Safety Report 7900923-2 (Version None)
Quarter: 2011Q4

REPORT INFORMATION
  Report Type: 
  Country: None (occurrence: None)
  Receive Date: 20111108
  Receipt Date: 20111025
  Transmission Date: 20120403
  Serious: Yes (Hospitalization, Disabling, Other)
  Sender: FDA-Public Use
  Company Number: US-ELI_LILLY_AND_COMPANY-US201110007781

PATIENT
  Age: 80 Year
  Sex: Male

DRUGS (1)
  1. CYMBALTA [Suspect]
     Indication: BACK PAIN
     Dosage: 30 MG, UNKNOWN

REACTIONS (4)
  - NEUROSTIMULATOR IMPLANTATION [None]
  - PARAPLEGIA [None]
  - POST PROCEDURAL HAEMORRHAGE [None]
  - POST PROCEDURAL COMPLICATION [None]
